FAERS Safety Report 20101941 (Version 1)
Quarter: 2021Q4

REPORT INFORMATION
  Report Type: Spontaneous
  Country: US (occurrence: None)
  Receive Date: 20211119
  Receipt Date: 20211119
  Transmission Date: 20220303
  Serious: No
  Sender: FDA-Public Use
  Company Number: None

PATIENT

DRUGS (2)
  1. MORPHINE [Suspect]
     Active Substance: MORPHINE
  2. HYDROMORPHONE [Suspect]
     Active Substance: HYDROMORPHONE

REACTIONS (6)
  - Oxygen saturation decreased [None]
  - Loss of consciousness [None]
  - Respiratory rate decreased [None]
  - Wrong technique in device usage process [None]
  - Vomiting [None]
  - Accidental overdose [None]
